FAERS Safety Report 9211139 (Version 1)
Quarter: 2013Q2

REPORT INFORMATION
  Report Type: Spontaneous
  Country: JP (occurrence: JP)
  Receive Date: 20130404
  Receipt Date: 20130404
  Transmission Date: 20140414
  Serious: Yes (Other)
  Sender: FDA-Public Use
  Company Number: JP-PFIZER INC-2013099379

PATIENT
  Age: 71 Year
  Sex: Female
  Weight: 43 kg

DRUGS (9)
  1. LYRICA [Suspect]
     Indication: POST HERPETIC NEURALGIA
     Dosage: 75 MG, 2X/DAY
     Route: 048
     Dates: start: 20121206, end: 20121210
  2. VALTREX [Suspect]
     Indication: POST HERPETIC NEURALGIA
     Dosage: 1000 MG, 3X/DAY
     Route: 048
     Dates: start: 20121206, end: 20121210
  3. METHYCOBAL [Concomitant]
     Indication: POST HERPETIC NEURALGIA
     Dosage: 500 MG, 3X/DAY
     Route: 048
     Dates: start: 20121206, end: 20121210
  4. CHONDROITIN [Concomitant]
     Indication: PAIN
     Dosage: 200 MG/DAY
     Route: 042
     Dates: start: 20121206, end: 20121210
  5. FEMARA [Concomitant]
     Indication: BREAST CANCER
     Dosage: 2.5 MG/DAY
     Route: 048
     Dates: start: 200909
  6. CONAN [Concomitant]
     Indication: HYPERTENSION
     Dosage: 10 MG, 2X/DAY
     Route: 048
     Dates: start: 1993
  7. ANSATUR [Concomitant]
     Indication: HYPERLIPIDAEMIA
     Dosage: 300 MG, 2X/DAY
     Route: 048
     Dates: start: 2008
  8. LIPITOR [Concomitant]
     Indication: HYPERCHOLESTEROLAEMIA
     Dosage: 5 MG/DAY
     Route: 048
     Dates: start: 2008
  9. ALLELOCK [Concomitant]
     Indication: PRURITUS
     Dosage: 5 MG, 2X/DAY
     Route: 048
     Dates: start: 20121208, end: 20121222

REACTIONS (2)
  - Dermatitis bullous [Recovered/Resolved with Sequelae]
  - Toxic skin eruption [Not Recovered/Not Resolved]
